FAERS Safety Report 24748122 (Version 1)
Quarter: 2024Q4

REPORT INFORMATION
  Report Type: Spontaneous
  Country: FR (occurrence: None)
  Receive Date: 20241218
  Receipt Date: 20241218
  Transmission Date: 20250115
  Serious: Yes (Other)
  Sender: ORION
  Company Number: None

PATIENT
  Age: 84 Year
  Sex: Male
  Weight: 70 kg

DRUGS (2)
  1. COMTAN [Suspect]
     Active Substance: ENTACAPONE
     Indication: Product used for unknown indication
     Dosage: STRENGTH: 200 MG?3 TABLETS AT 7 A.M., 11 A.M., AND 3 P.M.
     Dates: start: 20241128, end: 20241128
  2. OXAZEPAM [Suspect]
     Active Substance: OXAZEPAM
     Indication: Product used for unknown indication
     Dosage: 1 TABLET AT 7 A.M., 1 AT 12 P.M., AND 1 AT BEDTIME
     Dates: start: 20241128, end: 20241128

REACTIONS (5)
  - Product prescribing error [Recovered/Resolved]
  - Incorrect dosage administered [Recovered/Resolved]
  - Overdose [Recovered/Resolved]
  - Somnolence [Recovered/Resolved]
  - Hypotension [Recovered/Resolved]

NARRATIVE: CASE EVENT DATE: 20241128
